FAERS Safety Report 25683905 (Version 1)
Quarter: 2025Q3

REPORT INFORMATION
  Report Type: Report from Study
  Country: CH (occurrence: CH)
  Receive Date: 20250815
  Receipt Date: 20250815
  Transmission Date: 20251021
  Serious: Yes (Other)
  Sender: AUROBINDO
  Company Number: CH-AUROBINDO-AUR-APL-2024-023587

PATIENT
  Age: 45 Year
  Sex: Male

DRUGS (12)
  1. MELPHALAN [Suspect]
     Active Substance: MELPHALAN
     Indication: Waldenstrom^s macroglobulinaemia
     Route: 065
  2. MELPHALAN [Suspect]
     Active Substance: MELPHALAN
     Indication: Antiviral prophylaxis
     Route: 065
  3. BENDAMUSTINE [Suspect]
     Active Substance: BENDAMUSTINE
     Indication: Waldenstrom^s macroglobulinaemia
     Dosage: 200 MILLIGRAM/SQ. METER, TWO TIMES A DAY
     Route: 065
  4. BENDAMUSTINE [Suspect]
     Active Substance: BENDAMUSTINE
     Indication: Antiviral prophylaxis
  5. CYTARABINE [Suspect]
     Active Substance: CYTARABINE
     Indication: Waldenstrom^s macroglobulinaemia
     Dosage: 200 MILLIGRAM/SQ. METER, TWO TIMES A DAY
     Route: 065
  6. CYTARABINE [Suspect]
     Active Substance: CYTARABINE
     Indication: Antiviral prophylaxis
     Dosage: 200 MILLIGRAM/SQ. METER, TWO TIMES A DAY
     Route: 065
  7. ETOPOSIDE [Suspect]
     Active Substance: ETOPOSIDE
     Indication: Waldenstrom^s macroglobulinaemia
     Dosage: 150 MILLIGRAM/SQ. METER, TWO TIMES A DAY
     Route: 065
  8. ETOPOSIDE [Suspect]
     Active Substance: ETOPOSIDE
     Indication: Antiviral prophylaxis
     Dosage: 200 MILLIGRAM/SQ. METER, TWO TIMES A DAY
     Route: 065
  9. FILGRASTIM [Suspect]
     Active Substance: FILGRASTIM
     Indication: Waldenstrom^s macroglobulinaemia
     Route: 065
  10. FILGRASTIM [Suspect]
     Active Substance: FILGRASTIM
     Indication: Antiviral prophylaxis
  11. ACYCLOVIR [Suspect]
     Active Substance: ACYCLOVIR
     Indication: Waldenstrom^s macroglobulinaemia
     Dosage: 500 MILLIGRAM, TWO TIMES A DAY
     Route: 048
  12. ACYCLOVIR [Suspect]
     Active Substance: ACYCLOVIR
     Indication: Antiviral prophylaxis

REACTIONS (2)
  - Febrile neutropenia [Unknown]
  - Petechiae [Unknown]
